FAERS Safety Report 7096854-3 (Version None)
Quarter: 2010Q4

REPORT INFORMATION
  Report Type: 
  Country: None (occurrence: None)
  Receive Date: 20101111
  Receipt Date: 20101104
  Transmission Date: 20110411
  Serious: Yes (Disabling, Other)
  Sender: FDA-Public Use
  Company Number: AU-ROCHE-720508

PATIENT
  Sex: Female

DRUGS (3)
  1. AVASTIN [Suspect]
     Route: 042
     Dates: start: 20100301, end: 20100501
  2. LYRICA [Concomitant]
  3. LIVACT [Concomitant]

REACTIONS (4)
  - ABDOMINAL WALL DISORDER [None]
  - FEMALE GENITAL TRACT FISTULA [None]
  - IMPAIRED HEALING [None]
  - WEIGHT DECREASED [None]
